FAERS Safety Report 15426280 (Version 1)
Quarter: 2018Q3

REPORT INFORMATION
  Report Type: Spontaneous
  Country: US (occurrence: US)
  Receive Date: 20180925
  Receipt Date: 20180925
  Transmission Date: 20181010
  Serious: No
  Sender: FDA-Public Use
  Company Number: US-INDIVIOR LIMITED-INDV-104184-2017

PATIENT
  Sex: Female

DRUGS (3)
  1. SUBOXONE [Suspect]
     Active Substance: BUPRENORPHINE HYDROCHLORIDE\NALOXONE HYDROCHLORIDE
     Dosage: UNK, EXTRA DOSES
     Route: 065
     Dates: start: 201708, end: 201708
  2. SUBOXONE [Suspect]
     Active Substance: BUPRENORPHINE HYDROCHLORIDE\NALOXONE HYDROCHLORIDE
     Dosage: ? OF EACH OF 2 FILMS
     Route: 065
     Dates: start: 20170822
  3. SUBOXONE [Suspect]
     Active Substance: BUPRENORPHINE HYDROCHLORIDE\NALOXONE HYDROCHLORIDE
     Indication: DRUG DEPENDENCE
     Dosage: 8 MG, BID
     Route: 065
     Dates: start: 20170815, end: 201708

REACTIONS (6)
  - Intentional product use issue [Unknown]
  - Hypoaesthesia oral [Recovered/Resolved]
  - Drug effect incomplete [Unknown]
  - Product use issue [Unknown]
  - Product preparation error [Unknown]
  - Intentional underdose [Unknown]

NARRATIVE: CASE EVENT DATE: 201708
